FAERS Safety Report 19840712 (Version 1)
Quarter: 2021Q3

REPORT INFORMATION
  Report Type: Spontaneous
  Country: JP (occurrence: JP)
  Receive Date: 20210915
  Receipt Date: 20210915
  Transmission Date: 20211014
  Serious: Yes (Hospitalization)
  Sender: FDA-Public Use
  Company Number: JP-EISAI MEDICAL RESEARCH-EC-2021-099336

PATIENT
  Age: 48 Year
  Sex: Female

DRUGS (1)
  1. ERIBULIN [Suspect]
     Active Substance: ERIBULIN
     Indication: BREAST CANCER
     Route: 041
     Dates: start: 201903

REACTIONS (3)
  - Demyelinating polyneuropathy [Recovering/Resolving]
  - Nerve conduction studies abnormal [Recovering/Resolving]
  - Myokymia [Recovering/Resolving]

NARRATIVE: CASE EVENT DATE: 201907
